FAERS Safety Report 23932026 (Version 2)
Quarter: 2024Q2

REPORT INFORMATION
  Report Type: Spontaneous
  Country: TR (occurrence: TR)
  Receive Date: 20240603
  Receipt Date: 20240615
  Transmission Date: 20240715
  Serious: Yes (Hospitalization)
  Sender: FDA-Public Use
  Company Number: TR-Accord-426566

PATIENT
  Age: 29 Year
  Sex: Female

DRUGS (3)
  1. SERTRALINE [Suspect]
     Active Substance: SERTRALINE HYDROCHLORIDE
     Indication: Obsessive-compulsive disorder
     Dosage: TAKING FOR 2 YEARS
     Route: 048
     Dates: start: 2015, end: 201704
  2. QUETIAPINE [Concomitant]
     Active Substance: QUETIAPINE
     Indication: Obsessive-compulsive disorder
  3. OLANZAPINE [Concomitant]
     Active Substance: OLANZAPINE
     Indication: Obsessive-compulsive disorder
     Route: 048
     Dates: start: 2016, end: 2019

REACTIONS (3)
  - Mania [Recovered/Resolved]
  - Psychotic symptom [Recovering/Resolving]
  - Drug dose titration not performed [Recovering/Resolving]

NARRATIVE: CASE EVENT DATE: 20170101
